FAERS Safety Report 4451983-5 (Version None)
Quarter: 2004Q3

REPORT INFORMATION
  Report Type: 
  Country: None (occurrence: None)
  Receive Date: 20040915
  Receipt Date: 20040915
  Transmission Date: 20050211
  Serious: Yes (Hospitalization)
  Sender: FDA-Public Use
  Company Number: None

PATIENT
  Age: 80 Year
  Sex: Female
  Weight: 56.25 kg

DRUGS (13)
  1. DIGOXIN [Suspect]
     Indication: ATRIAL FIBRILLATION
     Dosage: 0.5 MG PO DAILY
     Route: 048
     Dates: start: 20040426, end: 20040503
  2. DIGOXIN [Suspect]
     Indication: CARDIAC FAILURE CONGESTIVE
     Dosage: 0.5 MG PO DAILY
     Route: 048
     Dates: start: 20040426, end: 20040503
  3. HYDROCODONE [Concomitant]
  4. PAROXETINE HCL [Concomitant]
  5. HYDRODIURIL [Concomitant]
  6. BENADRYL [Concomitant]
  7. PREMARIN [Concomitant]
  8. LEVOXYL [Concomitant]
  9. LASIX [Concomitant]
  10. ENALAPRIL MALEATE [Concomitant]
  11. LORAZEPAM [Concomitant]
  12. FAMOTIDINE [Concomitant]
  13. DETROL [Concomitant]

REACTIONS (6)
  - ANOREXIA [None]
  - CARDIOACTIVE DRUG LEVEL INCREASED [None]
  - FALL [None]
  - HIP FRACTURE [None]
  - LETHARGY [None]
  - MEDICATION ERROR [None]
